FAERS Safety Report 9032530 (Version 4)
Quarter: 2013Q2

REPORT INFORMATION
  Report Type: Spontaneous
  Country: CA (occurrence: CA)
  Receive Date: 20130125
  Receipt Date: 20130409
  Transmission Date: 20140414
  Serious: Yes (Death, Hospitalization, Other)
  Sender: FDA-Public Use
  Company Number: CA-TARO-2013P1000194

PATIENT
  Age: 85 Year
  Sex: Male

DRUGS (15)
  1. WARFARIN SODIUM [Suspect]
     Indication: HYPERCOAGULATION
     Route: 048
     Dates: start: 2007, end: 2012
  2. WARFARIN SODIUM [Suspect]
     Indication: HYPERCOAGULATION
     Route: 048
     Dates: start: 2007, end: 2012
  3. WARFARIN SODIUM [Suspect]
     Indication: HYPERCOAGULATION
     Route: 048
     Dates: start: 2007, end: 2012
  4. FUROSEMIDE [Concomitant]
     Dates: start: 2009, end: 20121108
  5. FUROSEMIDE [Concomitant]
  6. DILTIAZEM [Concomitant]
     Dates: start: 2009, end: 20121108
  7. SYNTHROID (LEVOTHYROXINE) [Concomitant]
     Dates: start: 2012, end: 20121108
  8. SALBUTAMOL INHALER [Concomitant]
     Dates: end: 20121108
  9. SPIRIVA (TIOTROPIUM BROMIDE) [Concomitant]
     Dates: end: 20121108
  10. ALLOPURINOL [Concomitant]
     Dates: end: 20121108
  11. CIPRALEX [Concomitant]
     Dates: end: 20121108
  12. SYMBICORT [Concomitant]
     Dates: end: 20121108
  13. ATIPRO [Concomitant]
     Dates: end: 20121108
  14. VENTOLIN [Concomitant]
     Dates: end: 20121108
  15. ZAROXOLYN [Concomitant]
     Dates: end: 20121108

REACTIONS (16)
  - Fall [Recovered/Resolved]
  - Abasia [Recovered/Resolved]
  - Myocardial infarction [Recovered/Resolved]
  - Laceration [Recovered/Resolved]
  - Wound haemorrhage [Recovered/Resolved]
  - Dizziness [Recovered/Resolved]
  - Headache [Recovered/Resolved]
  - Gait disturbance [Recovered/Resolved]
  - Vital functions abnormal [Recovered/Resolved]
  - Fracture [Recovered/Resolved]
  - Vascular calcification [Recovered/Resolved]
  - Malaise [Recovered/Resolved]
  - Swelling [Not Recovered/Not Resolved]
  - Venous insufficiency [Not Recovered/Not Resolved]
  - Balance disorder [Unknown]
  - Excoriation [Recovered/Resolved]
